FAERS Safety Report 15219853 (Version 1)
Quarter: 2018Q3

REPORT INFORMATION
  Report Type: Spontaneous
  Country: FR (occurrence: FR)
  Receive Date: 20180731
  Receipt Date: 20180731
  Transmission Date: 20181010
  Serious: Yes (Other)
  Sender: FDA-Public Use
  Company Number: FR-BRISTOL-MYERS SQUIBB COMPANY-BMS-2018-069126

PATIENT
  Age: 66 Year
  Sex: Female
  Weight: 47 kg

DRUGS (1)
  1. OPDIVO [Suspect]
     Active Substance: NIVOLUMAB
     Indication: HODGKIN^S DISEASE RECURRENT
     Dosage: 3 MG/KG, 2 MONTH
     Route: 042
     Dates: start: 20160525

REACTIONS (3)
  - Off label use [Unknown]
  - Right ventricular failure [Recovered/Resolved with Sequelae]
  - Radiation pericarditis [Recovered/Resolved with Sequelae]

NARRATIVE: CASE EVENT DATE: 20170512
